FAERS Safety Report 6396670-1 (Version None)
Quarter: 2009Q4

REPORT INFORMATION
  Report Type: 
  Country: None (occurrence: None)
  Receive Date: 20091012
  Receipt Date: 20091002
  Transmission Date: 20100525
  Serious: Yes (Other)
  Sender: FDA-Public Use
  Company Number: DE-AMGEN-UK367225

PATIENT
  Age: 67 Year
  Sex: Male

DRUGS (2)
  1. PEGFILGRASTIM [Suspect]
     Indication: CHEMOTHERAPY
     Route: 065
  2. AZACITIDINE [Suspect]
     Route: 065

REACTIONS (3)
  - DYSPHAGIA [None]
  - SALIVARY HYPERSECRETION [None]
  - SWOLLEN TONGUE [None]
